FAERS Safety Report 8505492-4 (Version None)
Quarter: 2012Q3

REPORT INFORMATION
  Report Type: 
  Country: None (occurrence: None)
  Receive Date: 20120712
  Receipt Date: 20120706
  Transmission Date: 20120928
  Serious: Yes (Hospitalization)
  Sender: FDA-Public Use
  Company Number: US-JNJFOC-20120703649

PATIENT
  Sex: Male

DRUGS (1)
  1. REMICADE [Suspect]
     Indication: PRODUCT USED FOR UNKNOWN INDICATION
     Route: 042

REACTIONS (6)
  - WEIGHT DECREASED [None]
  - LOSS OF CONSCIOUSNESS [None]
  - DIARRHOEA [None]
  - VOMITING [None]
  - PAIN [None]
  - DECREASED ACTIVITY [None]
